FAERS Safety Report 4879558-4 (Version None)
Quarter: 2006Q1

REPORT INFORMATION
  Report Type: 
  Country: None (occurrence: None)
  Receive Date: 20060111
  Receipt Date: 20051221
  Transmission Date: 20060701
  Serious: Yes (Other)
  Sender: FDA-Public Use
  Company Number: FI200511001945

PATIENT
  Age: 36 Year
  Sex: Female

DRUGS (5)
  1. CYMBALTA [Suspect]
     Indication: DEPRESSION
     Dosage: 30 MG DAILY (1/D) ORAL
     Route: 048
     Dates: start: 20051010, end: 20051102
  2. TRAMADOL HCL [Concomitant]
  3. HERBALIFE PRODUCTS                (HERBAL EXTRACTS NOS) [Concomitant]
  4. MIRENA [Concomitant]
  5. ACETAMINOPHEN [Concomitant]

REACTIONS (5)
  - ALANINE AMINOTRANSFERASE INCREASED [None]
  - ASPARTATE AMINOTRANSFERASE INCREASED [None]
  - BLOOD ALKALINE PHOSPHATASE INCREASED [None]
  - GAMMA-GLUTAMYLTRANSFERASE INCREASED [None]
  - MUSCULOSKELETAL CHEST PAIN [None]
